FAERS Safety Report 11013041 (Version 3)
Quarter: 2015Q3

REPORT INFORMATION
  Report Type: Spontaneous
  Country: JP (occurrence: None)
  Receive Date: 20150409
  Receipt Date: 20150803
  Transmission Date: 20151125
  Serious: Yes (Hospitalization, Other)
  Sender: FDA-Public Use
  Company Number: ADR-2015-00655

PATIENT
  Age: 40 Year
  Sex: Female
  Weight: 45 kg

DRUGS (1)
  1. GABALON INTRATHECAL [Suspect]
     Active Substance: BACLOFEN
     Indication: HEAD INJURY
     Dates: start: 20081022

REACTIONS (8)
  - Muscle tightness [None]
  - Hypertonia [None]
  - Muscle spasticity [None]
  - Device occlusion [None]
  - Device issue [None]
  - Myotonia [None]
  - Pyrexia [None]
  - Incorrect drug administration rate [None]
